FAERS Safety Report 19360478 (Version 1)
Quarter: 2021Q2

REPORT INFORMATION
  Report Type: Spontaneous
  Country: US (occurrence: US)
  Receive Date: 20210601
  Receipt Date: 20210601
  Transmission Date: 20210717
  Serious: Yes (Hospitalization)
  Sender: FDA-Public Use
  Company Number: US-CELGENEUS-USA-20210505987

PATIENT
  Sex: Male
  Weight: 88.53 kg

DRUGS (1)
  1. REVLIMID [Suspect]
     Active Substance: LENALIDOMIDE
     Indication: PLASMA CELL MYELOMA
     Dosage: 25 MILLIGRAM
     Route: 048
     Dates: start: 202103

REACTIONS (6)
  - Pyrexia [Unknown]
  - Neoplasm [Unknown]
  - Pelvic pain [Unknown]
  - Pain in extremity [Unknown]
  - Mouth swelling [Recovering/Resolving]
  - Arthralgia [Unknown]

NARRATIVE: CASE EVENT DATE: 2021
